FAERS Safety Report 15437712 (Version 1)
Quarter: 2018Q3

REPORT INFORMATION
  Report Type: Spontaneous
  Country: US (occurrence: US)
  Receive Date: 20180927
  Receipt Date: 20180927
  Transmission Date: 20181010
  Serious: No
  Sender: FDA-Public Use
  Company Number: US-ACTELION-A-US2018-179213

PATIENT
  Age: 61 Year
  Sex: Female

DRUGS (13)
  1. FUROSEMIDE. [Concomitant]
     Active Substance: FUROSEMIDE
  2. POTASSIUM [Concomitant]
     Active Substance: POTASSIUM
  3. METOPROLOL. [Concomitant]
     Active Substance: METOPROLOL
  4. SAPHRIS [Concomitant]
     Active Substance: ASENAPINE MALEATE
  5. DIVALPROEX SODIUM. [Concomitant]
     Active Substance: DIVALPROEX SODIUM
  6. OPSUMIT [Suspect]
     Active Substance: MACITENTAN
     Indication: PULMONARY ARTERIAL HYPERTENSION
     Dosage: 10 MG, UNK
     Route: 048
  7. TRAZODONE [Concomitant]
     Active Substance: TRAZODONE HYDROCHLORIDE
  8. OXAZEPAM. [Concomitant]
     Active Substance: OXAZEPAM
  9. LATUDA [Concomitant]
     Active Substance: LURASIDONE HYDROCHLORIDE
  10. LOSARTAN POTASSIUM. [Concomitant]
     Active Substance: LOSARTAN POTASSIUM
  11. JANUVIA [Concomitant]
     Active Substance: SITAGLIPTIN PHOSPHATE
  12. BENZOTROPINE [Concomitant]
     Active Substance: BENZTROPINE
  13. VENLAFAXINE [Concomitant]
     Active Substance: VENLAFAXINE HYDROCHLORIDE

REACTIONS (1)
  - Diarrhoea [Recovered/Resolved]
